FAERS Safety Report 19710134 (Version 2)
Quarter: 2021Q4

REPORT INFORMATION
  Report Type: Spontaneous
  Country: US (occurrence: US)
  Receive Date: 20210817
  Receipt Date: 20211005
  Transmission Date: 20220303
  Serious: Yes (Death)
  Sender: FDA-Public Use
  Company Number: NVSC2021US184219

PATIENT
  Age: 42 Year
  Sex: Female
  Weight: 98.2 kg

DRUGS (71)
  1. ADAKVEO [Suspect]
     Active Substance: CRIZANLIZUMAB-TMCA
     Indication: Sickle cell anaemia
     Dosage: 470 MG, Q2W X2 DOSES (INFUSED OVER 30 MINUTES)
     Route: 042
     Dates: start: 20210510
  2. ADAKVEO [Suspect]
     Active Substance: CRIZANLIZUMAB-TMCA
     Dosage: 470 MG, Q4W (OVER 30 MINUTES)
     Route: 042
  3. ADAKVEO [Suspect]
     Active Substance: CRIZANLIZUMAB-TMCA
     Dosage: 470 MG, Q4W
     Route: 042
     Dates: start: 20210525
  4. DEPO-PROVERA [Concomitant]
     Active Substance: MEDROXYPROGESTERONE ACETATE
     Indication: Product used for unknown indication
     Dosage: UNK
     Route: 030
     Dates: start: 20160607
  5. FOLIC ACID [Concomitant]
     Active Substance: FOLIC ACID
     Indication: Product used for unknown indication
     Dosage: 1 DF, QD
     Route: 048
     Dates: start: 20140319
  6. FOLIC ACID [Concomitant]
     Active Substance: FOLIC ACID
     Dosage: 1 DF, QD
     Route: 048
     Dates: start: 20200723
  7. FOLIC ACID [Concomitant]
     Active Substance: FOLIC ACID
     Dosage: 1 DF, QD
     Route: 048
     Dates: start: 20200918
  8. FOLIC ACID [Concomitant]
     Active Substance: FOLIC ACID
     Dosage: 1 DF, QD
     Route: 048
     Dates: start: 20201223
  9. FOLIC ACID [Concomitant]
     Active Substance: FOLIC ACID
     Dosage: 1 DF, QD
     Route: 048
     Dates: start: 20210112
  10. FOLIC ACID [Concomitant]
     Active Substance: FOLIC ACID
     Dosage: 1 DF, QD
     Route: 048
     Dates: start: 20210323
  11. HYDREA [Concomitant]
     Active Substance: HYDROXYUREA
     Indication: Product used for unknown indication
     Dosage: 4 DF, QD
     Route: 048
     Dates: start: 20170705
  12. HYDREA [Concomitant]
     Active Substance: HYDROXYUREA
     Dosage: 4 DF, QD
     Route: 048
     Dates: start: 20190811
  13. HYDREA [Concomitant]
     Active Substance: HYDROXYUREA
     Dosage: 4 DF, QD
     Route: 048
     Dates: start: 20200929
  14. HYDREA [Concomitant]
     Active Substance: HYDROXYUREA
     Dosage: 4 DF, QD
     Route: 048
     Dates: start: 20201113
  15. HYDREA [Concomitant]
     Active Substance: HYDROXYUREA
     Dosage: 4 DF, QD
     Route: 048
     Dates: start: 20210525
  16. LYRICA [Concomitant]
     Active Substance: PREGABALIN
     Indication: Product used for unknown indication
     Dosage: 2 DF, TID
     Route: 048
     Dates: start: 20141119
  17. LYRICA [Concomitant]
     Active Substance: PREGABALIN
     Dosage: 2 DF, TID
     Route: 048
     Dates: start: 20210115
  18. LYRICA [Concomitant]
     Active Substance: PREGABALIN
     Dosage: 2 DF, TID
     Route: 048
     Dates: start: 20210209
  19. LYRICA [Concomitant]
     Active Substance: PREGABALIN
     Dosage: 2 DF, TID
     Route: 048
     Dates: start: 20210211
  20. LYRICA [Concomitant]
     Active Substance: PREGABALIN
     Dosage: 2 DF, TID
     Route: 048
     Dates: start: 20210208
  21. MORPHINE SULFATE [Concomitant]
     Active Substance: MORPHINE SULFATE
     Indication: Product used for unknown indication
     Dosage: 3 DF (1-2 TABLETS EVERY 4 HOURS AS NEEDED FOR PAIN) 14 DAYS SUPPLY
     Route: 048
     Dates: start: 20160404
  22. MORPHINE SULFATE [Concomitant]
     Active Substance: MORPHINE SULFATE
     Dosage: 3 DF (1-2 TABLETS EVERY 4 HOURS AS NEEDED FOR PAIN) 14 DAYS SUPPLY
     Route: 048
     Dates: start: 20210713
  23. MORPHINE SULFATE [Concomitant]
     Active Substance: MORPHINE SULFATE
     Dosage: 3 DF (1-2 TABLETS EVERY 4 HOURS AS NEEDED FOR PAIN) 14 DAYS SUPPLY
     Route: 048
     Dates: start: 20210630
  24. MORPHINE SULFATE [Concomitant]
     Active Substance: MORPHINE SULFATE
     Dosage: 3 DF (1-2 TABLETS EVERY 4 HOURS AS NEEDED FOR PAIN) 14 DAYS SUPPLY
     Route: 048
     Dates: start: 20210614
  25. MORPHINE SULFATE [Concomitant]
     Active Substance: MORPHINE SULFATE
     Dosage: 3 DF (1-2 TABLETS EVERY 4 HOURS AS NEEDED FOR PAIN) 14 DAYS SUPPLY
     Route: 048
     Dates: start: 20210601
  26. MORPHINE SULFATE [Concomitant]
     Active Substance: MORPHINE SULFATE
     Dosage: 3 DF (1-2 TABLETS EVERY 4 HOURS AS NEEDED FOR PAIN) 14 DAYS SUPPLY
     Route: 048
     Dates: start: 20210617
  27. CARBAMAZEPINE [Concomitant]
     Active Substance: CARBAMAZEPINE
     Indication: Product used for unknown indication
     Dosage: 2 DF, QD (AT BEDTIME)
     Route: 048
     Dates: start: 20180319
  28. CARBAMAZEPINE [Concomitant]
     Active Substance: CARBAMAZEPINE
     Dosage: 2 DF, QD (AT BEDTIME)
     Route: 048
     Dates: start: 20210721
  29. CARBAMAZEPINE [Concomitant]
     Active Substance: CARBAMAZEPINE
     Dosage: 2 DF, QD (AT BEDTIME)
     Route: 048
     Dates: start: 20210630
  30. CARBAMAZEPINE [Concomitant]
     Active Substance: CARBAMAZEPINE
     Dosage: 2 DF, QD (AT BEDTIME)
     Route: 048
     Dates: start: 20210625
  31. CARBAMAZEPINE [Concomitant]
     Active Substance: CARBAMAZEPINE
     Dosage: 2 DF, QD (AT BEDTIME)
     Route: 048
     Dates: start: 20210527
  32. CARBAMAZEPINE [Concomitant]
     Active Substance: CARBAMAZEPINE
     Dosage: 2 DF, QD (AT BEDTIME)
     Route: 048
     Dates: start: 20210503
  33. IBUPROFEN [Concomitant]
     Active Substance: IBUPROFEN
     Indication: Product used for unknown indication
     Dosage: 3 DF (1-2 TABLETS WVERY 8 HOURS AS NEEDED FOR PAIN)
     Route: 048
     Dates: start: 20161206
  34. IBUPROFEN [Concomitant]
     Active Substance: IBUPROFEN
     Dosage: 3 DF (1-2 TABLETS WVERY 8 HOURS AS NEEDED FOR PAIN)
     Route: 048
     Dates: start: 20210713
  35. IBUPROFEN [Concomitant]
     Active Substance: IBUPROFEN
     Dosage: 3 DF (1-2 TABLETS WVERY 8 HOURS AS NEEDED FOR PAIN)
     Route: 048
     Dates: start: 20210601
  36. IBUPROFEN [Concomitant]
     Active Substance: IBUPROFEN
     Dosage: 3 DF (1-2 TABLETS WVERY 8 HOURS AS NEEDED FOR PAIN)
     Route: 048
     Dates: start: 20210504
  37. IBUPROFEN [Concomitant]
     Active Substance: IBUPROFEN
     Dosage: 3 DF (1-2 TABLETS WVERY 8 HOURS AS NEEDED FOR PAIN)
     Route: 048
     Dates: start: 20210416
  38. IBUPROFEN [Concomitant]
     Active Substance: IBUPROFEN
     Dosage: 3 DF (1-2 TABLETS WVERY 8 HOURS AS NEEDED FOR PAIN)
     Route: 048
     Dates: start: 20210308
  39. ZYRTEC [Concomitant]
     Active Substance: CETIRIZINE HYDROCHLORIDE
     Indication: Product used for unknown indication
     Dosage: 1 DF, QD
     Route: 048
     Dates: start: 20170424
  40. ZYRTEC [Concomitant]
     Active Substance: CETIRIZINE HYDROCHLORIDE
     Dosage: 1 DF, QD
     Route: 048
     Dates: start: 20190909
  41. MS CONTIN [Concomitant]
     Active Substance: MORPHINE SULFATE
     Indication: Product used for unknown indication
     Dosage: 1 DF, Q12H
     Route: 048
     Dates: start: 20181112
  42. MS CONTIN [Concomitant]
     Active Substance: MORPHINE SULFATE
     Dosage: 1 DF, Q12H
     Route: 048
     Dates: start: 20210713
  43. MS CONTIN [Concomitant]
     Active Substance: MORPHINE SULFATE
     Dosage: 1 DF, Q12H
     Route: 048
     Dates: start: 20210630
  44. MS CONTIN [Concomitant]
     Active Substance: MORPHINE SULFATE
     Dosage: 1 DF, Q12H
     Route: 048
     Dates: start: 20210614
  45. MS CONTIN [Concomitant]
     Active Substance: MORPHINE SULFATE
     Dosage: 1 DF, Q12H
     Route: 048
     Dates: start: 20210601
  46. MS CONTIN [Concomitant]
     Active Substance: MORPHINE SULFATE
     Dosage: 1 DF, Q12H
     Route: 048
     Dates: start: 20210517
  47. DULOXETINE HYDROCHLORIDE [Concomitant]
     Active Substance: DULOXETINE HYDROCHLORIDE
     Indication: Product used for unknown indication
     Dosage: 1 DF, BID
     Route: 048
     Dates: start: 20190531
  48. DULOXETINE HYDROCHLORIDE [Concomitant]
     Active Substance: DULOXETINE HYDROCHLORIDE
     Dosage: 1 DF, BID
     Route: 048
     Dates: start: 20190729
  49. DULOXETINE HYDROCHLORIDE [Concomitant]
     Active Substance: DULOXETINE HYDROCHLORIDE
     Dosage: 1 DF, BID
     Route: 048
     Dates: start: 20190716
  50. DULOXETINE HYDROCHLORIDE [Concomitant]
     Active Substance: DULOXETINE HYDROCHLORIDE
     Dosage: 1 DF, BID
     Route: 048
     Dates: start: 20190715
  51. DULOXETINE HYDROCHLORIDE [Concomitant]
     Active Substance: DULOXETINE HYDROCHLORIDE
     Dosage: 1 DF, BID
     Route: 048
     Dates: start: 20190624
  52. PROTONIX [Concomitant]
     Active Substance: PANTOPRAZOLE SODIUM
     Indication: Product used for unknown indication
     Dosage: 1 DF, QD
     Route: 048
     Dates: start: 20200221
  53. PROTONIX [Concomitant]
     Active Substance: PANTOPRAZOLE SODIUM
     Dosage: 1 DF, QD
     Route: 048
     Dates: start: 20210527
  54. PROTONIX [Concomitant]
     Active Substance: PANTOPRAZOLE SODIUM
     Dosage: 1 DF, QD
     Route: 048
     Dates: start: 20210504
  55. PROTONIX [Concomitant]
     Active Substance: PANTOPRAZOLE SODIUM
     Dosage: 1 DF, QD
     Route: 048
     Dates: start: 20210308
  56. PROTONIX [Concomitant]
     Active Substance: PANTOPRAZOLE SODIUM
     Dosage: 1 DF, QD
     Route: 048
     Dates: start: 20210112
  57. PROTONIX [Concomitant]
     Active Substance: PANTOPRAZOLE SODIUM
     Dosage: 1 DF, QD
     Route: 048
     Dates: start: 20201202
  58. NARCAN [Concomitant]
     Active Substance: NALOXONE HYDROCHLORIDE
     Indication: Product used for unknown indication
     Dosage: UNK, PRN (SPRAY INTO NOSTRIL FOR OPOID OVERDOSE, REPEAT IN 2-3 MIN PRN RESPONSIVENESS AND BREATING
     Route: 045
     Dates: start: 20200406
  59. MIRALAX [Concomitant]
     Active Substance: POLYETHYLENE GLYCOL 3350
     Indication: Product used for unknown indication
     Dosage: 17 G, QD (17 G IN 8OZ WATER)
     Route: 048
     Dates: start: 20200416
  60. REGLAN [Concomitant]
     Active Substance: METOCLOPRAMIDE HYDROCHLORIDE
     Indication: Product used for unknown indication
     Dosage: 1 DF, QD (AT NIGHT)
     Route: 048
     Dates: start: 20200721
  61. REGLAN [Concomitant]
     Active Substance: METOCLOPRAMIDE HYDROCHLORIDE
     Dosage: 1 DF, QD (AT NIGHT)
     Route: 048
     Dates: start: 20201207
  62. REGLAN [Concomitant]
     Active Substance: METOCLOPRAMIDE HYDROCHLORIDE
     Dosage: 1 DF, QD (AT NIGHT)
     Route: 048
     Dates: start: 20201229
  63. REGLAN [Concomitant]
     Active Substance: METOCLOPRAMIDE HYDROCHLORIDE
     Dosage: 1 DF, QD (AT NIGHT)
     Route: 048
     Dates: start: 20210503
  64. VITAMIN D3 [Concomitant]
     Active Substance: CHOLECALCIFEROL
     Indication: Product used for unknown indication
     Dosage: 1 DF, QD
     Route: 048
     Dates: start: 20201113
  65. VITAMIN D3 [Concomitant]
     Active Substance: CHOLECALCIFEROL
     Dosage: 1 DF, QD
     Route: 048
     Dates: start: 20210525
  66. ONDANSETRON [Concomitant]
     Active Substance: ONDANSETRON
     Indication: Product used for unknown indication
     Dosage: 1 DF, Q8H (DISSOLVE IN THE MOUTH AS NEEDED)
     Route: 048
     Dates: start: 20201113
  67. ONDANSETRON [Concomitant]
     Active Substance: ONDANSETRON
     Dosage: 1 DF, Q8H (DISSOLVE IN THE MOUTH AS NEEDED)
     Route: 048
     Dates: start: 20210713
  68. ONDANSETRON [Concomitant]
     Active Substance: ONDANSETRON
     Dosage: 1 DF, Q8H (DISSOLVE IN THE MOUTH AS NEEDED)
     Route: 048
     Dates: start: 20210614
  69. ONDANSETRON [Concomitant]
     Active Substance: ONDANSETRON
     Dosage: 1 DF, Q8H (DISSOLVE IN THE MOUTH AS NEEDED)
     Route: 048
     Dates: start: 20210527
  70. ONDANSETRON [Concomitant]
     Active Substance: ONDANSETRON
     Dosage: 1 DF, Q8H (DISSOLVE IN THE MOUTH AS NEEDED)
     Route: 048
     Dates: start: 20210517
  71. ONDANSETRON [Concomitant]
     Active Substance: ONDANSETRON
     Dosage: 1 DF, Q8H (DISSOLVE IN THE MOUTH AS NEEDED)
     Route: 048
     Dates: start: 20210203

REACTIONS (4)
  - Cardiac arrest [Fatal]
  - Pain [Fatal]
  - Unresponsive to stimuli [Fatal]
  - Pulse absent [Fatal]

NARRATIVE: CASE EVENT DATE: 20210716
